FAERS Safety Report 8443937-9 (Version None)
Quarter: 2012Q2

REPORT INFORMATION
  Report Type: 
  Country: None (occurrence: None)
  Receive Date: 20120618
  Receipt Date: 20120605
  Transmission Date: 20120825
  Serious: Yes (Other)
  Sender: FDA-Public Use
  Company Number: IT-PAR PHARMACEUTICAL, INC-2012SCPR004436

PATIENT

DRUGS (1)
  1. LEVETIRACETAM [Suspect]
     Indication: JUVENILE MYOCLONIC EPILEPSY
     Dosage: GRADUALLY TITRATED UP TO 2000 MG/DAY
     Route: 065

REACTIONS (4)
  - LOSS OF LIBIDO [None]
  - GRAND MAL CONVULSION [None]
  - ERECTILE DYSFUNCTION [None]
  - ANHEDONIA [None]
